FAERS Safety Report 5266975-6 (Version None)
Quarter: 2007Q1

REPORT INFORMATION
  Report Type: 
  Country: None (occurrence: None)
  Receive Date: 20070316
  Receipt Date: 20070305
  Transmission Date: 20070707
  Serious: Yes (Other)
  Sender: FDA-Public Use
  Company Number: PHBS2007BR04186

PATIENT
  Age: 59 Year
  Sex: Female
  Weight: 97 kg

DRUGS (12)
  1. DIOVAN [Suspect]
     Indication: HYPERTENSION
     Dosage: 160 MG, QD
     Dates: start: 20070101
  2. DIOVAN [Suspect]
     Dosage: 80 MG, QD
     Route: 048
     Dates: start: 20040101, end: 20070101
  3. HIGROTON [Suspect]
     Route: 048
     Dates: start: 20040101, end: 20070101
  4. VASTAREL [Concomitant]
     Indication: CARDIAC DISORDER
     Dosage: 2 DF, BID
     Route: 048
  5. ISOSORBIDE MONONITRATE [Concomitant]
     Indication: CARDIAC DISORDER
     Dosage: 2 DF, BID
  6. SOMALGIN [Concomitant]
     Dosage: 1 DF, UNK
     Route: 048
  7. VYTORIN [Concomitant]
     Indication: HYPERCHOLESTEROLAEMIA
     Dosage: 1 DF, QD
     Route: 048
  8. LEXOTANIL [Concomitant]
     Indication: AGITATION
     Dosage: 1 DF, BID
  9. GLUCOSAMINE [Concomitant]
     Indication: ARTHROPATHY
     Dosage: UNK, UNK
     Dates: start: 20060101, end: 20061201
  10. HYDROXYCHLOROQUINE SULFATE [Suspect]
     Dosage: 200 MG, UNK
     Dates: start: 20061219, end: 20070228
  11. CYCLOBENZAPRINE HCL [Suspect]
     Dosage: UNK, UNK
     Dates: start: 20061219, end: 20070228
  12. MELOXICAM [Suspect]
     Dosage: 15 MG, UNK
     Dates: start: 20061219, end: 20070228

REACTIONS (5)
  - BLOOD POTASSIUM DECREASED [None]
  - BLOOD PRESSURE INCREASED [None]
  - DYSPHONIA [None]
  - PHARYNGOLARYNGEAL PAIN [None]
  - TENSION [None]
